FAERS Safety Report 9055760 (Version 2)
Quarter: 2013Q1

REPORT INFORMATION
  Report Type: Spontaneous
  Country: FR (occurrence: FR)
  Receive Date: 20130206
  Receipt Date: 20130212
  Transmission Date: 20140127
  Serious: Yes (Other)
  Sender: FDA-Public Use
  Company Number: FR-ROCHE-1187480

PATIENT
  Age: 49 None
  Sex: Male

DRUGS (3)
  1. AVASTIN [Suspect]
     Indication: NEOPLASM MALIGNANT
     Route: 042
     Dates: start: 20121004, end: 20130110
  2. ALIMTA [Suspect]
     Indication: NEOPLASM MALIGNANT
     Route: 042
     Dates: start: 20121004, end: 20130110
  3. CISPLATINE [Suspect]
     Indication: NEOPLASM MALIGNANT
     Route: 042
     Dates: start: 20121004, end: 20130110

REACTIONS (2)
  - Peripheral ischaemia [Not Recovered/Not Resolved]
  - Arterial spasm [Not Recovered/Not Resolved]
